FAERS Safety Report 5447666-5 (Version None)
Quarter: 2007Q3

REPORT INFORMATION
  Report Type: 
  Country: None (occurrence: None)
  Receive Date: 20070910
  Receipt Date: 20070903
  Transmission Date: 20080115
  Serious: Yes (Other)
  Sender: FDA-Public Use
  Company Number: B0486382A

PATIENT
  Age: 48 Year
  Sex: Female
  Weight: 55 kg

DRUGS (6)
  1. NICORETTE [Suspect]
     Route: 045
     Dates: start: 20060101, end: 20070401
  2. BACLOFEN [Concomitant]
  3. GABAPENTIN [Concomitant]
  4. LOSEC [Concomitant]
  5. TRAMADOL HCL [Concomitant]
  6. HORMONE REPLACEMENT THERAPY [Concomitant]

REACTIONS (1)
  - BLINDNESS [None]
